FAERS Safety Report 7756203-1 (Version None)
Quarter: 2011Q3

REPORT INFORMATION
  Report Type: 
  Country: None (occurrence: None)
  Receive Date: 20110916
  Receipt Date: 20110912
  Transmission Date: 20111222
  Serious: Yes (Other)
  Sender: FDA-Public Use
  Company Number: US-PFIZER INC-2008099029

PATIENT
  Sex: Female
  Weight: 68.027 kg

DRUGS (11)
  1. FLAGYL [Suspect]
     Indication: DIARRHOEA
     Dosage: 250 MG, 1X/DAY
     Route: 042
     Dates: start: 20080613
  2. FLAGYL [Suspect]
     Dosage: UNK
  3. METRONIDAZOLE [Suspect]
     Indication: CLOSTRIDIUM DIFFICILE COLITIS
     Dosage: UN
     Dates: start: 20080101
  4. LISINOPRIL AND HYDROCHLOROTHIAZIDE [Concomitant]
     Indication: BLOOD PRESSURE
     Dosage: 20/25 MG DAILY
  5. NEURONTIN [Suspect]
     Indication: NEUROPATHY PERIPHERAL
     Dosage: 600 MG, 4X/DAY
     Dates: start: 20080901
  6. VERAPAMIL [Concomitant]
     Indication: BLOOD PRESSURE ABNORMAL
     Dosage: UNK
  7. SIMVASTATIN [Concomitant]
     Indication: BLOOD CHOLESTEROL
     Dosage: UNK MG, UNK
  8. ASPIRIN [Concomitant]
     Dosage: 325 MG, 1X/DAY
  9. ZOCOR [Concomitant]
     Indication: HYPERTENSION
     Dosage: 10 MG, DAILY
     Route: 048
     Dates: start: 20000101
  10. ZOCOR [Concomitant]
     Indication: BLOOD CHOLESTEROL INCREASED
  11. FLAGYL [Suspect]
     Indication: CLOSTRIDIUM DIFFICILE COLITIS
     Dosage: 500 MG, 2X/DAY
     Route: 042
     Dates: start: 20080707, end: 20080826

REACTIONS (4)
  - CLOSTRIDIUM DIFFICILE COLITIS [None]
  - DRUG INEFFECTIVE [None]
  - NEUROPATHY PERIPHERAL [None]
  - DIABETES MELLITUS [None]
